FAERS Safety Report 5766866-8 (Version None)
Quarter: 2008Q2

REPORT INFORMATION
  Report Type: 
  Country: None (occurrence: None)
  Receive Date: 20080612
  Receipt Date: 20080602
  Transmission Date: 20081010
  Serious: Yes (Hospitalization, Other)
  Sender: FDA-Public Use
  Company Number: FR-ABBOTT-08P-056-0447837-00

PATIENT
  Sex: Female

DRUGS (5)
  1. NORVIR [Suspect]
     Indication: HIV INFECTION
     Route: 048
     Dates: start: 20070711, end: 20071009
  2. TRUVADA [Suspect]
     Indication: HIV INFECTION
     Dosage: 200MG/245MG
     Route: 048
     Dates: start: 20070711, end: 20071009
  3. TRUVADA [Suspect]
     Dates: start: 20071015, end: 20071019
  4. FOSAMPRENAVIR [Suspect]
     Indication: HIV INFECTION
     Route: 048
     Dates: start: 20070212, end: 20071009
  5. ACETYLSALICYLATE LYSINE [Concomitant]
     Indication: DRUG USE FOR UNKNOWN INDICATION
     Route: 048

REACTIONS (11)
  - CANDIDURIA [None]
  - CONFUSIONAL STATE [None]
  - DIARRHOEA [None]
  - ESCHERICHIA INFECTION [None]
  - INFLAMMATION [None]
  - NERVOUS SYSTEM DISORDER [None]
  - PYELONEPHRITIS ACUTE [None]
  - PYREXIA [None]
  - RENAL FAILURE [None]
  - RENAL FAILURE ACUTE [None]
  - SEPSIS [None]
